FAERS Safety Report 25201693 (Version 1)
Quarter: 2025Q2

REPORT INFORMATION
  Report Type: Spontaneous
  Country: SE (occurrence: SE)
  Receive Date: 20250416
  Receipt Date: 20250416
  Transmission Date: 20250717
  Serious: Yes (Death, Other)
  Sender: AMGEN
  Company Number: SE-AMGEN-SWESP2025071717

PATIENT

DRUGS (1)
  1. ETANERCEPT [Suspect]
     Active Substance: ETANERCEPT
     Indication: Rheumatoid arthritis
     Route: 065

REACTIONS (4)
  - Death [Fatal]
  - Neutropenic infection [Fatal]
  - Diffuse large B-cell lymphoma [Unknown]
  - Therapy partial responder [Unknown]
